FAERS Safety Report 16079420 (Version 3)
Quarter: 2019Q2

REPORT INFORMATION
  Report Type: Spontaneous
  Country: JP (occurrence: JP)
  Receive Date: 20190315
  Receipt Date: 20190422
  Transmission Date: 20190711
  Serious: Yes (Other)
  Sender: FDA-Public Use
  Company Number: PHJP2019JP003252

PATIENT
  Age: 82 Year
  Sex: Male

DRUGS (2)
  1. ZOMETA [Suspect]
     Active Substance: ZOLEDRONIC ACID
     Indication: METASTASES TO SPINE
  2. ZOMETA [Suspect]
     Active Substance: ZOLEDRONIC ACID
     Indication: METASTASES TO BONE
     Dosage: 4 MG
     Route: 041
     Dates: start: 201601

REACTIONS (6)
  - Exposed bone in jaw [Unknown]
  - Soft tissue infection [Unknown]
  - Erythema [Unknown]
  - Swelling [Unknown]
  - Osteonecrosis of jaw [Unknown]
  - Purulence [Unknown]

NARRATIVE: CASE EVENT DATE: 20171030
